FAERS Safety Report 7352667-6 (Version None)
Quarter: 2011Q1

REPORT INFORMATION
  Report Type: 
  Country: None (occurrence: None)
  Receive Date: 20110302
  Receipt Date: 20101025
  Transmission Date: 20110831
  Serious: Yes (Other)
  Sender: FDA-Public Use
  Company Number: 163-21880-10100870

PATIENT
  Age: 65 Year
  Sex: Female
  Weight: 67.1324 kg

DRUGS (7)
  1. REVLIMID [Suspect]
     Indication: MULTIPLE MYELOMA
     Dosage: 25 MG, DAILY FOR 21 DAYS THEN TAKE 1 WEEK OFF, PO, 10 MG, 1 IN 1 D, PO
     Route: 048
     Dates: start: 20100830
  2. REVLIMID [Suspect]
     Indication: MULTIPLE MYELOMA
     Dosage: 25 MG, DAILY FOR 21 DAYS THEN TAKE 1 WEEK OFF, PO, 10 MG, 1 IN 1 D, PO
     Route: 048
     Dates: start: 20101001
  3. DEXAMETHASONE [Concomitant]
  4. ZOMETA [Concomitant]
  5. DIOVAN [Concomitant]
  6. OXYCONTIN [Concomitant]
  7. DEMEROL [Concomitant]

REACTIONS (8)
  - LOSS OF CONSCIOUSNESS [None]
  - ANAEMIA [None]
  - FALL [None]
  - MUSCLE SPASMS [None]
  - RENAL FAILURE ACUTE [None]
  - THIRST [None]
  - DYSPHONIA [None]
  - DYSGEUSIA [None]
